FAERS Safety Report 5227298-4 (Version None)
Quarter: 2007Q1

REPORT INFORMATION
  Report Type: 
  Country: None (occurrence: None)
  Receive Date: 20070130
  Receipt Date: 20070117
  Transmission Date: 20070707
  Serious: Yes (Hospitalization)
  Sender: FDA-Public Use
  Company Number: CERZ-11485

PATIENT
  Age: 42 Year
  Sex: Female
  Weight: 63.6 kg

DRUGS (1)
  1. CEREZYME [Suspect]
     Indication: GAUCHER'S DISEASE
     Dosage: 81 U/KG Q2WKS IV
     Route: 042
     Dates: start: 19980415

REACTIONS (1)
  - ARTHRITIS [None]
